FAERS Safety Report 4762584-3 (Version None)
Quarter: 2005Q3

REPORT INFORMATION
  Report Type: 
  Country: None (occurrence: None)
  Receive Date: 20050907
  Receipt Date: 20050405
  Transmission Date: 20060218
  Serious: Yes (Other)
  Sender: FDA-Public Use
  Company Number: US-GLAXOSMITHKLINE-A0553163A

PATIENT
  Age: 26 Year
  Sex: Female
  Weight: 67.3 kg

DRUGS (2)
  1. WELLBUTRIN [Suspect]
     Indication: DEPRESSION
     Route: 048
     Dates: start: 20001201, end: 20040401
  2. ALESSE [Concomitant]
     Route: 048
     Dates: start: 20020501, end: 20050501

REACTIONS (6)
  - AMNESIA [None]
  - FEELING ABNORMAL [None]
  - GRAND MAL CONVULSION [None]
  - HEADACHE [None]
  - INCONTINENCE [None]
  - MEDICATION ERROR [None]
